FAERS Safety Report 9245288 (Version 1)
Quarter: 2013Q1

REPORT INFORMATION
  Report Type: Spontaneous
  Country: US (occurrence: None)
  Receive Date: 20121130
  Receipt Date: 20121130
  Transmission Date: 20140127
  Serious: Yes (Hospitalization)
  Sender: FDA-Public Use
  Company Number: 336368

PATIENT
  Age: 70 Year
  Sex: Male
  Weight: 112.5 kg

DRUGS (14)
  1. NOVOLOG [Suspect]
     Indication: TYPE 2 DIABETES MELLITUS
     Dates: start: 2007
  2. LISINOPRIL (LISINOPRIL) [Concomitant]
  3. GABAPENTIN (GABPENTIN) [Concomitant]
  4. MELOXICAM (MELOXICAM) [Concomitant]
  5. ALLOPURINOL [Concomitant]
  6. LANTUS (INSULIN GLARGINE) [Concomitant]
  7. ATENOLOL (ATENOLOL) [Concomitant]
  8. OMEPRAZOLE (OMEPRAZOLE) [Concomitant]
  9. FUROSEMIDE (FUROSEMIDE) [Concomitant]
  10. CITALOPRAM (CITALOPRAM) [Concomitant]
  11. TAMSULOSIN (TAMSULOSIN) [Concomitant]
  12. DOXAZOSIN (DOXAZOSIN) [Concomitant]
  13. PRAVASTATIN (PRAVASTATIN) [Concomitant]
  14. FEBOFIBRATE [Concomitant]

REACTIONS (2)
  - Blood glucose decreased [None]
  - Blood glucose increased [None]
